FAERS Safety Report 4682297-6 (Version None)
Quarter: 2005Q2

REPORT INFORMATION
  Report Type: 
  Country: None (occurrence: None)
  Receive Date: 20050606
  Receipt Date: 20050525
  Transmission Date: 20051028
  Serious: Yes (Death, Life-Threatening, Hospitalization)
  Sender: FDA-Public Use
  Company Number: US-JNJFOC-20050507407

PATIENT
  Sex: Female
  Weight: 56.7 kg

DRUGS (3)
  1. ORTHO TRI-CYCLEN LO [Suspect]
     Route: 049
  2. ZONEGRAN [Suspect]
     Route: 049
  3. ZONEGRAN [Suspect]
     Indication: PARTIAL SEIZURES
     Route: 049

REACTIONS (5)
  - ALANINE AMINOTRANSFERASE INCREASED [None]
  - ASPARTATE AMINOTRANSFERASE INCREASED [None]
  - CARDIAC ARREST [None]
  - HYPOCOAGULABLE STATE [None]
  - PULMONARY EMBOLISM [None]
